FAERS Safety Report 7557441-3 (Version None)
Quarter: 2011Q2

REPORT INFORMATION
  Report Type: 
  Country: None (occurrence: None)
  Receive Date: 20110618
  Receipt Date: 20110618
  Transmission Date: 20111010
  Serious: No
  Sender: FDA-Public Use
  Company Number: None

PATIENT
  Age: 16 Year
  Sex: Female
  Weight: 54.4316 kg

DRUGS (1)
  1. DEPAKOTE [Suspect]

REACTIONS (9)
  - ENCEPHALOPATHY [None]
  - DYSARTHRIA [None]
  - HEPATOTOXICITY [None]
  - CEREBRAL ATROPHY [None]
  - SOCIAL PROBLEM [None]
  - QUALITY OF LIFE DECREASED [None]
  - HYPERAMMONAEMIA [None]
  - THINKING ABNORMAL [None]
  - STUPOR [None]
